FAERS Safety Report 4563969-0 (Version None)
Quarter: 2005Q1

REPORT INFORMATION
  Report Type: 
  Country: None (occurrence: None)
  Receive Date: 20050121
  Receipt Date: 20050110
  Transmission Date: 20050727
  Serious: Yes (Disabling)
  Sender: FDA-Public Use
  Company Number: 2005011247

PATIENT
  Age: 55 Year
  Sex: Male
  Weight: 114 kg

DRUGS (6)
  1. GABAPENTIN [Suspect]
     Indication: NEUROPATHIC PAIN
     Dosage: 1200 MG (300 MG, 4 IN 1 D), ORAL
     Route: 048
     Dates: start: 20031201, end: 20040901
  2. LOSARTAN (LOSARTAN) [Concomitant]
  3. ATORVASTATIN (ATORVASTATIN) [Concomitant]
  4. ASPIRIN [Concomitant]
  5. LERCANIDIPINE [Concomitant]
  6. ACETAMINOPHEN [Concomitant]

REACTIONS (2)
  - DEPRESSION [None]
  - DYSTONIA [None]
